FAERS Safety Report 5941643-3 (Version None)
Quarter: 2008Q4

REPORT INFORMATION
  Report Type: 
  Country: None (occurrence: None)
  Receive Date: 20081104
  Receipt Date: 20081104
  Transmission Date: 20090506
  Serious: Yes (Other)
  Sender: FDA-Public Use
  Company Number: None

PATIENT
  Age: 19 Year
  Sex: Female
  Weight: 45.3597 kg

DRUGS (1)
  1. NUVARING [Suspect]
     Indication: CONTRACEPTION
     Dosage: .120 MG/ .015 MG DAILY VAG
     Route: 067
     Dates: start: 20081010, end: 20081103

REACTIONS (14)
  - ASTHENIA [None]
  - DEPRESSION [None]
  - DYSPNOEA [None]
  - FATIGUE [None]
  - INSOMNIA [None]
  - LOSS OF LIBIDO [None]
  - METRORRHAGIA [None]
  - MOOD ALTERED [None]
  - MOOD SWINGS [None]
  - NAUSEA [None]
  - NERVOUSNESS [None]
  - PARANOIA [None]
  - PULMONARY EMBOLISM [None]
  - VAGINAL HAEMORRHAGE [None]
